FAERS Safety Report 7605476-4 (Version None)
Quarter: 2011Q3

REPORT INFORMATION
  Report Type: 
  Country: None (occurrence: None)
  Receive Date: 20110713
  Receipt Date: 20110706
  Transmission Date: 20111222
  Serious: No
  Sender: FDA-Public Use
  Company Number: US-PFIZER INC-2011112259

PATIENT
  Sex: Male

DRUGS (2)
  1. ERAXIS [Suspect]
     Indication: ASPERGILLOSIS
     Dosage: 200 MG, PICC LINE
     Route: 042
     Dates: start: 20110408, end: 20110408
  2. ERAXIS [Suspect]
     Indication: CHRONIC SINUSITIS
     Dosage: UNK
     Route: 042
     Dates: start: 20110409, end: 20110513

REACTIONS (1)
  - MALAISE [None]
